FAERS Safety Report 4315857-2 (Version None)
Quarter: 2004Q1

REPORT INFORMATION
  Report Type: 
  Country: None (occurrence: None)
  Receive Date: 20040310
  Receipt Date: 20040225
  Transmission Date: 20041129
  Serious: Yes (Other)
  Sender: FDA-Public Use
  Company Number: S04-FRA-00935-01

PATIENT
  Sex: Female

DRUGS (2)
  1. SEROPRAM (CITALOPRAM HYDROBROMIDE) [Suspect]
     Indication: MAJOR DEPRESSION
     Dates: end: 20030701
  2. SEROPRAM (CITALOPRAM HYDROBROMIDE) [Suspect]
     Indication: MAJOR DEPRESSION
     Dates: start: 20040201, end: 20040201

REACTIONS (2)
  - MYELODYSPLASTIC SYNDROME [None]
  - NEUTROPENIA [None]
